FAERS Safety Report 5599428-6 (Version None)
Quarter: 2008Q1

REPORT INFORMATION
  Report Type: 
  Country: None (occurrence: None)
  Receive Date: 20080122
  Receipt Date: 20080110
  Transmission Date: 20080703
  Serious: Yes (Hospitalization)
  Sender: FDA-Public Use
  Company Number: FR-PFIZER INC-2008003867

PATIENT
  Sex: Female

DRUGS (5)
  1. LYRICA [Suspect]
     Indication: SCIATICA
     Dosage: DAILY DOSE:150MG
     Route: 048
     Dates: start: 20070926, end: 20070929
  2. LYSANXIA [Suspect]
     Indication: DEPRESSION
     Dosage: DAILY DOSE:15MG
     Route: 048
  3. TRAMADOL HCL [Suspect]
     Indication: SCIATICA
     Dosage: DAILY DOSE:200MG
     Route: 048
     Dates: start: 20070926, end: 20070929
  4. NORSET [Suspect]
     Indication: DEPRESSION
     Dosage: DAILY DOSE:30MG
     Route: 048
  5. TRIMEPRAZINE TAB [Suspect]
     Dosage: DAILY DOSE:450DROP
     Route: 048

REACTIONS (1)
  - ABNORMAL BEHAVIOUR [None]
